FAERS Safety Report 8169270-0 (Version None)
Quarter: 2012Q1

REPORT INFORMATION
  Report Type: 
  Country: None (occurrence: None)
  Receive Date: 20120228
  Receipt Date: 20120216
  Transmission Date: 20120608
  Serious: Yes (Hospitalization, Other)
  Sender: FDA-Public Use
  Company Number: US-ASTRAZENECA-2011SE53429

PATIENT
  Age: 59 Year
  Sex: Female

DRUGS (3)
  1. PRILOSEC [Suspect]
     Route: 048
  2. CRESTOR [Suspect]
     Route: 048
  3. NEXIUM [Suspect]
     Route: 048

REACTIONS (18)
  - CHOKING [None]
  - DEPRESSION [None]
  - GASTROOESOPHAGEAL REFLUX DISEASE [None]
  - RHINORRHOEA [None]
  - INFLUENZA [None]
  - BURNING SENSATION [None]
  - PARANOIA [None]
  - ABDOMINAL DISCOMFORT [None]
  - DRUG INEFFECTIVE [None]
  - THROMBOSIS [None]
  - FEELING ABNORMAL [None]
  - MEDICAL DEVICE COMPLICATION [None]
  - ANXIETY [None]
  - WRONG DRUG ADMINISTERED [None]
  - FALL [None]
  - VOMITING [None]
  - DRUG DOSE OMISSION [None]
  - FEAR [None]
